FAERS Safety Report 24122000 (Version 2)
Quarter: 2024Q3

REPORT INFORMATION
  Report Type: Spontaneous
  Country: JP (occurrence: JP)
  Receive Date: 20240722
  Receipt Date: 20240725
  Transmission Date: 20241016
  Serious: Yes (Other)
  Sender: EISAI
  Company Number: JP-Eisai-202404821_HAL_P_1

PATIENT
  Age: 59 Year
  Sex: Female

DRUGS (1)
  1. HALAVEN [Suspect]
     Active Substance: ERIBULIN MESYLATE
     Indication: Breast cancer
     Dosage: DOSE UNKNOWN
     Route: 041

REACTIONS (1)
  - Large intestine perforation [Unknown]
